FAERS Safety Report 8435599-1 (Version None)
Quarter: 2012Q2

REPORT INFORMATION
  Report Type: 
  Country: None (occurrence: None)
  Receive Date: 20120608
  Receipt Date: 20120531
  Transmission Date: 20120825
  Serious: Yes (Other)
  Sender: FDA-Public Use
  Company Number: 2012SP017874

PATIENT
  Age: 74 Year
  Sex: Male
  Weight: 64 kg

DRUGS (10)
  1. PREDNISOLONE [Concomitant]
  2. ALLOPURINOL [Concomitant]
  3. PEG-INTRON [Suspect]
     Indication: HEPATITIS C
     Dosage: 1.5 MCG/KG;QW;SC
     Route: 058
  4. REBETOL [Suspect]
     Indication: HEPATITIS C
     Dosage: 600 MG;QD;PO 200 MG;QD;PO
     Route: 048
     Dates: start: 20120405, end: 20120426
  5. TELAVIC (ANTIVIRALS NOS) [Suspect]
     Indication: HEPATITIS C
     Dosage: 2250 MG;QD;PO 1500 MG;QD;PO 750 MG;QD;PO
     Route: 048
     Dates: start: 20120202
  6. TELAVIC (ANTIVIRALS NOS) [Suspect]
     Indication: HEPATITIS C
     Dosage: 2250 MG;QD;PO 1500 MG;QD;PO 750 MG;QD;PO
     Route: 048
     Dates: start: 20120322, end: 20120418
  7. TELAVIC (ANTIVIRALS NOS) [Suspect]
     Indication: HEPATITIS C
     Dosage: 2250 MG;QD;PO 1500 MG;QD;PO 750 MG;QD;PO
     Route: 048
     Dates: start: 20120419, end: 20120426
  8. ZESULAN [Concomitant]
  9. NERISONA [Concomitant]
  10. LANSOPRAZOLE [Concomitant]

REACTIONS (5)
  - DYSGEUSIA [None]
  - RENAL DISORDER [None]
  - PRURITUS [None]
  - RASH [None]
  - HYPERURICAEMIA [None]
